FAERS Safety Report 7352356-8 (Version None)
Quarter: 2011Q1

REPORT INFORMATION
  Report Type: 
  Country: None (occurrence: None)
  Receive Date: 20110315
  Receipt Date: 20110307
  Transmission Date: 20110831
  Serious: Yes (Life-Threatening, Other)
  Sender: FDA-Public Use
  Company Number: US-GENZYME-THYM-1002345

PATIENT
  Age: 10 Month
  Sex: Female

DRUGS (4)
  1. THYMOGLOBULIN [Suspect]
     Indication: PROPHYLAXIS AGAINST TRANSPLANT REJECTION
     Route: 042
  2. GLUCOCORTICOSTEROIDS [Concomitant]
     Indication: PROPHYLAXIS AGAINST TRANSPLANT REJECTION
  3. TACROLIMUS [Concomitant]
     Indication: PROPHYLAXIS AGAINST TRANSPLANT REJECTION
  4. SOLUTIONS FOR PARENTERAL NUTRITION [Concomitant]
     Indication: MEDICAL DIET
     Route: 051

REACTIONS (3)
  - MULTIPLE ORGAN TRANSPLANT REJECTION [None]
  - EPSTEIN-BARR VIRAEMIA [None]
  - HEPATITIS INFECTIOUS MONONUCLEOSIS [None]
